FAERS Safety Report 6362483-X (Version None)
Quarter: 2009Q3

REPORT INFORMATION
  Report Type: 
  Country: None (occurrence: None)
  Receive Date: 20090918
  Receipt Date: 20090602
  Transmission Date: 20100115
  Serious: No
  Sender: FDA-Public Use
  Company Number: US-ABBOTT-09P-163-0577287-00

PATIENT
  Sex: Male
  Weight: 117.13 kg

DRUGS (1)
  1. HUMIRA [Suspect]
     Indication: RHEUMATOID ARTHRITIS
     Route: 058
     Dates: start: 20090518

REACTIONS (4)
  - COUGH [None]
  - NIGHT SWEATS [None]
  - OROPHARYNGEAL PAIN [None]
  - WHEEZING [None]
